FAERS Safety Report 16792317 (Version 4)
Quarter: 2019Q3

REPORT INFORMATION
  Report Type: Report from Study
  Country: KR (occurrence: KR)
  Receive Date: 20190910
  Receipt Date: 20190926
  Transmission Date: 20191005
  Serious: Yes (Hospitalization)
  Sender: FDA-Public Use
  Company Number: PHHO2019KR008866

PATIENT
  Age: 59 Year
  Sex: Male
  Weight: 77.8 kg

DRUGS (19)
  1. MYPOL [Concomitant]
     Indication: PAIN
     Dosage: 1 DF, TID
     Route: 048
     Dates: start: 201903, end: 20190816
  2. FURTMAN [Concomitant]
     Indication: PROPHYLAXIS
     Dosage: 0.5 ML
     Route: 042
     Dates: start: 20190901, end: 20190901
  3. TRAMADOL. [Concomitant]
     Active Substance: TRAMADOL
     Indication: PAIN
     Dosage: 100 MG, UNK
     Route: 042
     Dates: start: 20190901, end: 20190901
  4. ARONAMIN C PLUS [Concomitant]
     Indication: VITAMIN SUPPLEMENTATION
     Dosage: 1 DF, BID
     Route: 048
     Dates: start: 201903
  5. TAMIPOOL [Concomitant]
     Active Substance: VITAMINS
     Indication: VITAMIN SUPPLEMENTATION
     Dosage: 1 DF, UNK
     Route: 042
     Dates: start: 20190901, end: 20190901
  6. WINUF PERI [Concomitant]
     Indication: DECREASED APPETITE
     Dosage: 1085 ML, UNK
     Route: 042
     Dates: start: 20190901, end: 20190901
  7. BYL719 [Suspect]
     Active Substance: ALPELISIB
     Dosage: 250 MG, QD
     Route: 048
     Dates: start: 20190919
  8. HEXAMEDINE [Concomitant]
     Indication: DRY MOUTH
     Dosage: 100 ML, UNK
     Route: 049
     Dates: start: 20190901
  9. MORPHIN HCL [Concomitant]
     Active Substance: MORPHINE HYDROCHLORIDE
     Indication: PAIN
     Dosage: 20 MG, UNK
     Route: 042
     Dates: start: 20190902, end: 20190904
  10. BYL719 [Suspect]
     Active Substance: ALPELISIB
     Indication: TONSIL CANCER
     Dosage: 350 MG, QD
     Route: 048
     Dates: start: 20190816, end: 20190829
  11. MEGESTROL ACETATE. [Concomitant]
     Active Substance: MEGESTROL ACETATE
     Indication: DECREASED APPETITE
     Dosage: 20 ML, QD
     Route: 048
     Dates: start: 201903
  12. SERRONASE [Concomitant]
     Indication: SKIN ULCER
     Dosage: 1 DF, TID
     Route: 048
     Dates: start: 201906, end: 20190816
  13. LAFUTIDINE [Concomitant]
     Active Substance: LAFUTIDINE
     Indication: PROPHYLAXIS
     Dosage: 10 MG, BID
     Route: 048
     Dates: start: 201906, end: 20190816
  14. TANTUM VERDE [Concomitant]
     Active Substance: BENZYDAMINE HYDROCHLORIDE
     Indication: DRY MOUTH
     Dosage: 30 ML, UNK
     Route: 065
     Dates: start: 201809
  15. CODEINE [Concomitant]
     Active Substance: CODEINE
     Indication: PRODUCTIVE COUGH
     Dosage: 3 TSP, UNK
     Route: 048
     Dates: start: 20190903
  16. AMBROXOL [Concomitant]
     Active Substance: AMBROXOL
     Indication: PRODUCTIVE COUGH
     Dosage: 45 MG, UNK
     Route: 042
     Dates: start: 20190903, end: 20190904
  17. OXYCODONE [Concomitant]
     Active Substance: OXYCODONE
     Indication: PAIN
     Dosage: 2 TSP, UNK
     Route: 048
     Dates: start: 20190904
  18. BYL719 [Suspect]
     Active Substance: ALPELISIB
     Dosage: 300 MG, BID
     Route: 048
     Dates: start: 20190904, end: 20190916
  19. DURAGESIC [Concomitant]
     Active Substance: FENTANYL
     Indication: PAIN
     Dosage: 0.012 UNK, UNK
     Route: 062
     Dates: start: 20190829

REACTIONS (2)
  - Fatigue [Recovered/Resolved]
  - Hyperglycaemia [Recovered/Resolved with Sequelae]

NARRATIVE: CASE EVENT DATE: 20190830
